FAERS Safety Report 16712386 (Version 1)
Quarter: 2019Q3

REPORT INFORMATION
  Report Type: Other
  Country: CN (occurrence: CN)
  Receive Date: 20190816
  Receipt Date: 20190816
  Transmission Date: 20191004
  Serious: Yes (Hospitalization)
  Sender: FDA-Public Use
  Company Number: CN-GE HEALTHCARE LIFE SCIENCES-2019CSU004238

PATIENT

DRUGS (2)
  1. VISIPAQUE [Suspect]
     Active Substance: IODIXANOL
     Indication: CORONARY ARTERIAL STENT INSERTION
     Dosage: 52 ML, SINGLE
     Route: 041
     Dates: start: 20190523, end: 20190523
  2. VISIPAQUE [Suspect]
     Active Substance: IODIXANOL
     Indication: ARTERIOSCLEROSIS CORONARY ARTERY

REACTIONS (1)
  - Henoch-Schonlein purpura [Recovered/Resolved]

NARRATIVE: CASE EVENT DATE: 20190526
